FAERS Safety Report 14791197 (Version 1)
Quarter: 2018Q2

REPORT INFORMATION
  Report Type: Report from Study
  Country: None (occurrence: US)
  Receive Date: 20180423
  Receipt Date: 20180423
  Transmission Date: 20180711
  Serious: Yes (Other)
  Sender: FDA-Public Use
  Company Number: US-ABBVIE-18S-163-2327341-00

PATIENT
  Age: 27 Year
  Sex: Female

DRUGS (6)
  1. PANCREASE MT [Suspect]
     Active Substance: PANCRELIPASE
     Route: 065
     Dates: start: 201604, end: 201606
  2. ZENPEP [Suspect]
     Active Substance: PANCRELIPASE AMYLASE\PANCRELIPASE LIPASE\PANCRELIPASE PROTEASE
     Indication: PRODUCT USED FOR UNKNOWN INDICATION
     Route: 065
     Dates: start: 201611
  3. PANCREASE MT [Suspect]
     Active Substance: PANCRELIPASE
     Route: 065
     Dates: start: 201607, end: 201611
  4. CREON [Suspect]
     Active Substance: PANCRELIPASE AMYLASE\PANCRELIPASE LIPASE\PANCRELIPASE PROTEASE
     Indication: PANCREATIC FAILURE
     Dosage: DAILY WITH EACH MEAL
     Route: 048
     Dates: start: 201602, end: 201604
  5. CREON [Suspect]
     Active Substance: PANCRELIPASE AMYLASE\PANCRELIPASE LIPASE\PANCRELIPASE PROTEASE
     Dosage: DAILY WITH EACH MEAL
     Route: 048
     Dates: start: 201606, end: 201607
  6. PANCREASE MT [Suspect]
     Active Substance: PANCRELIPASE
     Indication: PANCREATIC FAILURE
     Route: 065

REACTIONS (6)
  - Constipation [Unknown]
  - Pancreatic failure [Unknown]
  - Constipation [Recovered/Resolved]
  - Constipation [Recovered/Resolved]
  - Diarrhoea [Unknown]
  - Diarrhoea [Unknown]

NARRATIVE: CASE EVENT DATE: 2016
